FAERS Safety Report 5934310-3 (Version None)
Quarter: 2008Q4

REPORT INFORMATION
  Report Type: 
  Country: None (occurrence: None)
  Receive Date: 20081029
  Receipt Date: 20081020
  Transmission Date: 20090506
  Serious: Yes (Other)
  Sender: FDA-Public Use
  Company Number: PHHY2008CA24416

PATIENT
  Sex: Male

DRUGS (4)
  1. RASILEZ [Suspect]
     Indication: BLOOD PRESSURE INCREASED
     Dosage: UNK
     Route: 048
     Dates: start: 20080715
  2. RASILEZ [Suspect]
     Dosage: UNK
     Route: 048
     Dates: start: 20080923
  3. CRESTOR [Concomitant]
     Dosage: 5 MG, QD
  4. ASPIRIN [Concomitant]
     Dosage: 81 MG, QD

REACTIONS (6)
  - BALANCE DISORDER [None]
  - BLOOD PRESSURE ABNORMAL [None]
  - DIZZINESS [None]
  - HEADACHE [None]
  - NAUSEA [None]
  - SENSATION OF PRESSURE [None]
